FAERS Safety Report 8831236 (Version 1)
Quarter: 2012Q4

REPORT INFORMATION
  Report Type: 
  Country: US (occurrence: US)
  Receive Date: 20121008
  Receipt Date: 20121008
  Transmission Date: 20130627
  Serious: Yes (Hospitalization)
  Sender: FDA-Public Use
  Company Number: US-PFIZER INC-2012244224

PATIENT
  Age: 74 Year
  Sex: Female

DRUGS (1)
  1. SUTENT [Suspect]
     Indication: RENAL CANCER
     Dosage: 50 mg, 1x/day (daily)
     Dates: start: 20120807

REACTIONS (6)
  - Gait disturbance [Unknown]
  - Pain in extremity [Unknown]
  - Gout [Unknown]
  - Hypophagia [Unknown]
  - Stomatitis [Unknown]
  - Asthenia [Unknown]
